FAERS Safety Report 16359182 (Version 2)
Quarter: 2019Q4

REPORT INFORMATION
  Report Type: Spontaneous
  Country: US (occurrence: US)
  Receive Date: 20190527
  Receipt Date: 20191227
  Transmission Date: 20200122
  Serious: No
  Sender: FDA-Public Use
  Company Number: US-SA-2019SA140692

PATIENT
  Age: 15 Year
  Sex: Male

DRUGS (1)
  1. DUPIXENT [Suspect]
     Active Substance: DUPILUMAB
     Dosage: 200 MG, QOW
     Route: 058
     Dates: start: 201904

REACTIONS (4)
  - Joint injury [Unknown]
  - Fall [Unknown]
  - Conjunctivitis [Recovered/Resolved]
  - Middle ear effusion [Unknown]

NARRATIVE: CASE EVENT DATE: 2019
